FAERS Safety Report 10705689 (Version 3)
Quarter: 2016Q1

REPORT INFORMATION
  Report Type: Report from Study
  Country: DE (occurrence: CO)
  Receive Date: 20150112
  Receipt Date: 20160315
  Transmission Date: 20160525
  Serious: Yes (Other)
  Sender: FDA-Public Use
  Company Number: DE-ACTELION-A-US2015-111004

PATIENT
  Age: 64 Year
  Sex: Male

DRUGS (3)
  1. VENTAVIS [Suspect]
     Active Substance: ILOPROST
     Indication: PULMONARY HYPERTENSION
     Dosage: 3 NEBULIZATIONS DAILY
     Route: 055
     Dates: start: 20140606, end: 201410
  2. VENTAVIS [Suspect]
     Active Substance: ILOPROST
     Dosage: 1 DF, 8/D
     Route: 055
     Dates: end: 20151001
  3. VENTAVIS [Suspect]
     Active Substance: ILOPROST
     Dosage: 1 DF, 8/D
     Route: 055
     Dates: end: 20150927

REACTIONS (4)
  - Hypotension [Not Recovered/Not Resolved]
  - Drug ineffective [Unknown]
  - Prescribed underdose [Unknown]
  - Asphyxia [Not Recovered/Not Resolved]

NARRATIVE: CASE EVENT DATE: 20141006
